FAERS Safety Report 8520689-5 (Version None)
Quarter: 2012Q3

REPORT INFORMATION
  Report Type: 
  Country: None (occurrence: None)
  Receive Date: 20120709
  Receipt Date: 20120625
  Transmission Date: 20120928
  Serious: Yes (Other)
  Sender: FDA-Public Use
  Company Number: 2012MA001688

PATIENT
  Sex: Female

DRUGS (15)
  1. NAPROXEN [Concomitant]
  2. FUROSEMIDE [Concomitant]
  3. ASPIRIN [Concomitant]
  4. CIPROFLOXACIN [Concomitant]
  5. SIMVASTATIN [Concomitant]
  6. ALTACE [Concomitant]
  7. CIMETIDINE [Concomitant]
  8. ALTACE [Concomitant]
  9. LEVOTHYROXINE SODIUM [Concomitant]
  10. SYNTHROID [Concomitant]
  11. METOCLOPRAMIDE [Suspect]
     Dosage: 10 MG;PO
     Route: 048
     Dates: start: 20050314, end: 20090429
  12. DIPHENHYDRAMINE HCL [Concomitant]
  13. ZOCOR [Concomitant]
  14. LEVOXYL [Concomitant]
  15. CYTOMEL [Concomitant]

REACTIONS (8)
  - DYSKINESIA [None]
  - EXTRAPYRAMIDAL DISORDER [None]
  - EMOTIONAL DISORDER [None]
  - TREMOR [None]
  - AKATHISIA [None]
  - INJURY [None]
  - ECONOMIC PROBLEM [None]
  - TARDIVE DYSKINESIA [None]
